FAERS Safety Report 12536847 (Version 1)
Quarter: 2016Q3

REPORT INFORMATION
  Report Type: Spontaneous
  Country: FR (occurrence: FR)
  Receive Date: 20160707
  Receipt Date: 20160707
  Transmission Date: 20161109
  Serious: Yes (Disabling, Other)
  Sender: FDA-Public Use
  Company Number: FR-009507513-1607FRA001657

PATIENT
  Sex: Female

DRUGS (1)
  1. NEXPLANON [Suspect]
     Active Substance: ETONOGESTREL
     Indication: PRODUCT USED FOR UNKNOWN INDICATION
     Dosage: UNK, UNKNOWN
     Route: 059
     Dates: start: 20150709, end: 20160523

REACTIONS (4)
  - Sensorimotor disorder [Not Recovered/Not Resolved]
  - General anaesthesia [Unknown]
  - Device dislocation [Unknown]
  - Complication associated with device [Unknown]

NARRATIVE: CASE EVENT DATE: 201512
